FAERS Safety Report 13322102 (Version 1)
Quarter: 2017Q1

REPORT INFORMATION
  Report Type: Report from Study
  Country: US (occurrence: US)
  Receive Date: 20170310
  Receipt Date: 20170310
  Transmission Date: 20170428
  Serious: Yes (Hospitalization)
  Sender: FDA-Public Use
  Company Number: US-GILEAD-2017-0261586

PATIENT
  Age: 65 Year
  Sex: Male

DRUGS (15)
  1. LANTUS [Concomitant]
     Active Substance: INSULIN GLARGINE
  2. AMITRIPTYLINE [Concomitant]
     Active Substance: AMITRIPTYLINE
  3. ADCIRCA [Concomitant]
     Active Substance: TADALAFIL
  4. LOTREL [Concomitant]
     Active Substance: AMLODIPINE BESYLATE\BENAZEPRIL HYDROCHLORIDE
  5. LISINOPRIL. [Concomitant]
     Active Substance: LISINOPRIL
  6. LACTULOSE. [Concomitant]
     Active Substance: LACTULOSE
  7. LYRICA [Concomitant]
     Active Substance: PREGABALIN
  8. LASIX [Concomitant]
     Active Substance: FUROSEMIDE
  9. OXYCODONE [Concomitant]
     Active Substance: OXYCODONE
  10. ASPIRIN                            /00002701/ [Concomitant]
     Active Substance: ASPIRIN
  11. CODEINE [Concomitant]
     Active Substance: CODEINE
  12. AMBRISENTAN [Suspect]
     Active Substance: AMBRISENTAN
     Indication: PULMONARY HYPERTENSION
     Dosage: 10 MG, QD
     Route: 065
     Dates: start: 20100825
  13. CYMBALTA [Concomitant]
     Active Substance: DULOXETINE HYDROCHLORIDE
  14. NOVOLOG [Concomitant]
     Active Substance: INSULIN ASPART
  15. NADOLOL. [Concomitant]
     Active Substance: NADOLOL

REACTIONS (1)
  - Confusional state [Not Recovered/Not Resolved]

NARRATIVE: CASE EVENT DATE: 20170306
